FAERS Safety Report 11174365 (Version 1)
Quarter: 2015Q2

REPORT INFORMATION
  Report Type: Spontaneous
  Country: US (occurrence: None)
  Receive Date: 20150608
  Receipt Date: 20150608
  Transmission Date: 20150821
  Serious: Yes (Other)
  Sender: FDA-Public Use
  Company Number: None

PATIENT
  Age: 72 Year
  Sex: Male

DRUGS (1)
  1. SUTENT [Suspect]
     Active Substance: SUNITINIB MALATE
     Indication: RENAL CANCER
     Dosage: 37.5MG QD X 4 WEEKS BY MOUTH
     Route: 048
     Dates: start: 20141201

REACTIONS (4)
  - Pain in extremity [None]
  - Peripheral swelling [None]
  - Fatigue [None]
  - Ageusia [None]

NARRATIVE: CASE EVENT DATE: 20150430
